FAERS Safety Report 18278151 (Version 1)
Quarter: 2020Q3

REPORT INFORMATION
  Report Type: Spontaneous
  Country: IT (occurrence: IT)
  Receive Date: 20200917
  Receipt Date: 20200917
  Transmission Date: 20201103
  Serious: Yes (Hospitalization)
  Sender: FDA-Public Use
  Company Number: IT-ANIPHARMA-2020-IT-000167

PATIENT
  Age: 29 Year
  Sex: Female

DRUGS (4)
  1. FLUCONAZOLE TABLETS (NON?SPECIFIC) [Suspect]
     Active Substance: FLUCONAZOLE
     Indication: ORAL CANDIDIASIS
     Dosage: 100 MG DAILY
     Route: 048
  2. CLOZAPINE. [Suspect]
     Active Substance: CLOZAPINE
     Indication: ACUTE PSYCHOSIS
     Dosage: 225 MG DAILY
     Route: 048
  3. MICONAZOLE 2% ORAL GEL [Suspect]
     Active Substance: MICONAZOLE
     Indication: ORAL CANDIDIASIS
     Dosage: 20 MG TWICE DAILY
     Route: 048
  4. ETHINYL ESTRADIOL + DROSPIRENONE [Suspect]
     Active Substance: DROSPIRENONE\ETHINYL ESTRADIOL
     Indication: CONTRACEPTION
     Dosage: 0.03 MG AND 3 MG DAILY
     Route: 048

REACTIONS (4)
  - Eosinophilia [Recovered/Resolved]
  - Pericarditis [Recovered/Resolved]
  - Pericardial effusion [Recovered/Resolved]
  - Drug interaction [Recovered/Resolved]
